FAERS Safety Report 9747257 (Version 2)
Quarter: 2014Q1

REPORT INFORMATION
  Report Type: Report from Study
  Country: BR (occurrence: BR)
  Receive Date: 20131212
  Receipt Date: 20140112
  Transmission Date: 20141002
  Serious: Yes (Other)
  Sender: FDA-Public Use
  Company Number: BR-ROCHE-1315995

PATIENT
  Sex: Male
  Weight: 70 kg

DRUGS (6)
  1. INTERFERON ALFA-2A [Suspect]
     Indication: PRODUCT USED FOR UNKNOWN INDICATION
     Route: 065
     Dates: start: 20120427, end: 20130406
  2. RIBAVIRIN [Suspect]
     Indication: PRODUCT USED FOR UNKNOWN INDICATION
     Route: 065
     Dates: start: 20120427, end: 20130406
  3. RINOSORO [Concomitant]
     Indication: NASAL SEPTUM DEVIATION
  4. DULCOLAX (BISACODYL) [Concomitant]
  5. ATENOLOL [Concomitant]
     Indication: HYPERTENSION
     Route: 065
  6. LOSARTAN [Concomitant]
     Indication: HYPERTENSION
     Route: 065

REACTIONS (6)
  - Depression [Recovered/Resolved]
  - Insomnia [Recovered/Resolved]
  - Weight decreased [Recovered/Resolved]
  - Decreased appetite [Recovered/Resolved]
  - Feeling of despair [Recovered/Resolved]
  - Pain [Recovered/Resolved]
